FAERS Safety Report 5594725-2 (Version None)
Quarter: 2007Q4

REPORT INFORMATION
  Report Type: 
  Country: None (occurrence: None)
  Receive Date: 20071218
  Receipt Date: 20070405
  Transmission Date: 20080405
  Serious: Yes (Other)
  Sender: FDA-Public Use
  Company Number: 2006124708

PATIENT
  Sex: Female

DRUGS (2)
  1. BEXTRA [Suspect]
     Indication: BACK PAIN
     Dosage: (10 MG,1 D),ORAL
     Route: 048
     Dates: start: 20020601
  2. VIOXX [Suspect]
     Dosage: ORAL
     Route: 048
     Dates: start: 20020401

REACTIONS (1)
  - DEEP VEIN THROMBOSIS [None]
